FAERS Safety Report 5511144-5 (Version None)
Quarter: 2007Q4

REPORT INFORMATION
  Report Type: 
  Country: None (occurrence: None)
  Receive Date: 20071109
  Receipt Date: 20071105
  Transmission Date: 20080405
  Serious: Yes (Death)
  Sender: FDA-Public Use
  Company Number: CA-NOVOPROD-269123

PATIENT
  Age: 20 Year
  Sex: Male

DRUGS (1)
  1. NIASTASE [Suspect]
     Dosage: 90 UG/KG TOTAL: 4.8 MG,
     Dates: start: 20070218

REACTIONS (1)
  - INTESTINAL ISCHAEMIA [None]
